FAERS Safety Report 4871913-1 (Version None)
Quarter: 2005Q4

REPORT INFORMATION
  Report Type: 
  Country: None (occurrence: None)
  Receive Date: 20051230
  Receipt Date: 20051220
  Transmission Date: 20060501
  Serious: Yes (Hospitalization)
  Sender: FDA-Public Use
  Company Number: 2005171022

PATIENT
  Age: 13 Year
  Sex: Female
  Weight: 46 kg

DRUGS (4)
  1. SOLU-MEDROL [Suspect]
     Indication: ACUTE LEUKAEMIA
     Dosage: 90 MG (1 IN 1 D) INTRAVENOUS
     Route: 042
     Dates: start: 20050415, end: 20050430
  2. VINCRISTINE SULFATE [Concomitant]
  3. DAUNORUBICIN HYDROCHLORIDE [Concomitant]
  4. ASPARGINASE (ASPARGINASE) [Concomitant]

REACTIONS (1)
  - HYPERGLYCAEMIA [None]
